FAERS Safety Report 4464999-X (Version None)
Quarter: 2004Q4

REPORT INFORMATION
  Report Type: 
  Country: None (occurrence: None)
  Receive Date: 20041004
  Receipt Date: 20040603
  Transmission Date: 20050328
  Serious: No
  Sender: FDA-Public Use
  Company Number: 374046

PATIENT
  Age: 47 Year
  Sex: Female

DRUGS (3)
  1. COREG [Suspect]
     Indication: HYPERTENSION
     Dosage: 6.25MG PER DAY
     Route: 048
     Dates: start: 20040401
  2. DYAZIDE [Suspect]
     Indication: HYPERTENSION
     Route: 048
     Dates: start: 20040301
  3. ISMO [Concomitant]

REACTIONS (2)
  - BALANCE DISORDER [None]
  - FEELING COLD [None]
